FAERS Safety Report 4653279-5 (Version None)
Quarter: 2005Q2

REPORT INFORMATION
  Report Type: 
  Country: None (occurrence: None)
  Receive Date: 20050503
  Receipt Date: 20050420
  Transmission Date: 20051028
  Serious: Yes (Hospitalization, Other)
  Sender: FDA-Public Use
  Company Number: HQWYE239322MAR05

PATIENT
  Age: 25 Year
  Sex: Male

DRUGS (5)
  1. RAPAMUNE [Suspect]
     Indication: PROPHYLAXIS AGAINST TRANSPLANT REJECTION
     Dosage: 4 MG 1X PER 1 DAY
     Route: 048
     Dates: start: 20040123, end: 20040827
  2. CAPTOPRIL [Suspect]
  3. SULFAMETHOXAZOLE + TRIMETHOPRIM [Concomitant]
  4. CELLCEPT [Concomitant]
  5. PREDNISONE [Concomitant]

REACTIONS (2)
  - BLOOD CREATININE INCREASED [None]
  - GRAFT DYSFUNCTION [None]
